FAERS Safety Report 23523040 (Version 1)
Quarter: 2024Q1

REPORT INFORMATION
  Report Type: Spontaneous
  Country: TR (occurrence: TR)
  Receive Date: 20240214
  Receipt Date: 20240214
  Transmission Date: 20240410
  Serious: Yes (Other)
  Sender: FDA-Public Use
  Company Number: TR-AMGEN-TURSP2024028069

PATIENT

DRUGS (2)
  1. BEVACIZUMAB [Suspect]
     Active Substance: BEVACIZUMAB
     Indication: Macular oedema
     Dosage: UNK
  2. DEXAMETHASONE [Concomitant]
     Active Substance: DEXAMETHASONE
     Dosage: UNK (IMPLANT)

REACTIONS (5)
  - Glaucoma [Unknown]
  - Cataract [Unknown]
  - Drug ineffective for unapproved indication [Unknown]
  - Drug effective for unapproved indication [Unknown]
  - Off label use [Unknown]
